FAERS Safety Report 10744957 (Version 5)
Quarter: 2015Q3

REPORT INFORMATION
  Report Type: Report from Study
  Country: US (occurrence: US)
  Receive Date: 20150128
  Receipt Date: 20150721
  Transmission Date: 20151125
  Serious: Yes (Hospitalization, Other)
  Sender: FDA-Public Use
  Company Number: US-GILEAD-2015-0134074

PATIENT
  Age: 47 Year
  Sex: Female

DRUGS (6)
  1. AMBRISENTAN [Suspect]
     Active Substance: AMBRISENTAN
     Indication: SYSTEMIC LUPUS ERYTHEMATOSUS
  2. SILDENAFIL. [Concomitant]
     Active Substance: SILDENAFIL
  3. REMODULIN [Concomitant]
     Active Substance: TREPROSTINIL
  4. REVATIO [Concomitant]
     Active Substance: SILDENAFIL CITRATE
  5. AMBRISENTAN [Suspect]
     Active Substance: AMBRISENTAN
     Indication: PULMONARY HYPERTENSION
     Dosage: 10 MG, QD
     Route: 065
     Dates: start: 20140922
  6. ORENITRAM [Concomitant]
     Active Substance: TREPROSTINIL

REACTIONS (4)
  - Pulmonary arterial hypertension [Unknown]
  - Pulmonary fibrosis [Unknown]
  - Fall [Unknown]
  - Infection [Unknown]
